FAERS Safety Report 16398454 (Version 1)
Quarter: 2019Q2

REPORT INFORMATION
  Report Type: Spontaneous
  Country: IN (occurrence: IN)
  Receive Date: 20190513
  Receipt Date: 20190513
  Transmission Date: 20190711
  Serious: Yes (Other)
  Sender: FDA-Public Use
  Company Number: None

PATIENT
  Age: 27 Year
  Sex: Male
  Weight: 85 kg

DRUGS (1)
  1. VIGORA 100 [Suspect]
     Active Substance: SILDENAFIL
     Dates: start: 20190510

REACTIONS (1)
  - Penile oedema [None]

NARRATIVE: CASE EVENT DATE: 20190511
